FAERS Safety Report 5417248-X (Version None)
Quarter: 2007Q3

REPORT INFORMATION
  Report Type: 
  Country: None (occurrence: None)
  Receive Date: 20070816
  Receipt Date: 20070807
  Transmission Date: 20080115
  Serious: Yes (Hospitalization)
  Sender: FDA-Public Use
  Company Number: US-SHR-US-2006-006391

PATIENT
  Age: 76 Year
  Sex: Male
  Weight: 68.027 kg

DRUGS (64)
  1. CAMPATH [Suspect]
     Indication: CHRONIC LYMPHOCYTIC LEUKAEMIA
     Dosage: 30 MG/DAY D1-5 Q28 DAYS
     Route: 058
     Dates: start: 20060313, end: 20060317
  2. CAMPATH [Suspect]
     Dosage: 30 MG/DAY D1-5 Q28 DAYS
     Route: 058
     Dates: start: 20060501, end: 20060505
  3. CAMPATH [Suspect]
     Dosage: 30 MG/DAY D1-5 Q28 DAYS
     Route: 058
     Dates: start: 20060530, end: 20060602
  4. CAMPATH [Suspect]
     Dosage: 30 MG, 1 DOSE (CYCLE 3)
     Route: 058
     Dates: start: 20060605, end: 20060605
  5. FLUDARA [Suspect]
     Indication: CHRONIC LYMPHOCYTIC LEUKAEMIA
     Dosage: 20 MG/M2/D D1-5 Q28 DAYS
     Route: 042
     Dates: start: 20060313, end: 20060317
  6. FLUDARA [Suspect]
     Dosage: 20 MG/M2/D D1-5 Q28 DAYS
     Route: 042
     Dates: start: 20060501, end: 20060505
  7. FLUDARA [Suspect]
     Dosage: 20 MG/M2/D D1-5 Q28 DAYS
     Route: 042
     Dates: start: 20060530, end: 20060602
  8. FLUDARA [Suspect]
     Dosage: 20 MG/M2, 1 DOSE (CYCLE 3)
     Route: 042
     Dates: start: 20060605, end: 20060605
  9. ALBUTEROL [Concomitant]
     Dosage: 1 DOSE, INHALER
     Route: 055
     Dates: start: 20060321, end: 20060321
  10. PREDNISONE TAB [Concomitant]
     Indication: AUTOIMMUNE THROMBOCYTOPENIA
     Dosage: 40 MG, 1X/DAY
     Route: 048
     Dates: start: 20060217, end: 20060322
  11. PREDNISONE TAB [Concomitant]
     Dosage: 30 MG, DAILY
     Route: 048
     Dates: start: 20060323
  12. PREDNISONE TAB [Concomitant]
     Dosage: 25 MG DAILY X2 DAYS
     Route: 048
     Dates: start: 20060427, end: 20060428
  13. PREDNISONE TAB [Concomitant]
     Dosage: 20 MG DAILY X2 DAYS
     Route: 048
     Dates: start: 20060429, end: 20060430
  14. PREDNISONE TAB [Concomitant]
     Dosage: 15 MG DAILY X2 DAYS
     Route: 048
     Dates: start: 20060501, end: 20060502
  15. PREDNISONE TAB [Concomitant]
     Dosage: 10 MG DAILY X2 DAYS
     Route: 048
     Dates: start: 20060503, end: 20060504
  16. PREDNISONE TAB [Concomitant]
     Dosage: 5 MG DAILY X2 DAYS
     Route: 048
     Dates: start: 20060505, end: 20060506
  17. PREDNISONE TAB [Concomitant]
     Dosage: 5 MG DAILY
     Route: 048
     Dates: start: 20060511
  18. ACYCLOVIR [Concomitant]
     Dosage: 350 MG, EVERY 12 HRS
     Route: 042
     Dates: start: 20060228, end: 20060310
  19. ALLOPURINOL [Concomitant]
     Dosage: 100 MG, 1X/DAY
     Route: 048
     Dates: start: 20060114
  20. DOCUSATE CALCIUM [Concomitant]
     Indication: CONSTIPATION
     Dosage: 240 MG, 2X/DAY
     Route: 048
     Dates: start: 20051105
  21. FERROUS SULFATE [Concomitant]
     Dosage: 325 MG, 3X/DAY
     Route: 048
     Dates: start: 20051101
  22. FLUCONAZOLE [Concomitant]
     Indication: ANTIFUNGAL PROPHYLAXIS
     Dosage: 200 MG, 1X/DAY
     Route: 048
     Dates: start: 20060228, end: 20060308
  23. FOLIC ACID [Concomitant]
     Dosage: 1 MG, 1X/DAY
     Route: 048
     Dates: start: 20051001
  24. VITAMIN CAP [Concomitant]
     Indication: VITAMIN SUPPLEMENTATION
     Dosage: 1 TAB(S), 1X/DAY
     Route: 048
     Dates: start: 20051001
  25. TERAZOSIN HYDROCHLORIDE [Concomitant]
     Dosage: 4 MG, BED T.
     Route: 048
     Dates: start: 20050401
  26. CIPROFLOXACIN [Concomitant]
     Indication: ANTIBIOTIC PROPHYLAXIS
     Dosage: 400 MG, EVERY 12H
     Route: 042
     Dates: start: 20060228, end: 20060310
  27. IMIPENEM [Concomitant]
     Indication: ANTIBIOTIC PROPHYLAXIS
     Dosage: 500 MG, EVERY 8H
     Route: 042
     Dates: start: 20060228, end: 20060310
  28. OXYCODONE W/PARACETAMOL [Concomitant]
     Indication: BACK PAIN
     Dosage: 5 MG/325 MG, EVERY 6H
     Route: 048
     Dates: start: 20051202, end: 20060310
  29. FINASTERIDE [Concomitant]
     Dosage: 5 MG, 1X/DAY
     Route: 048
     Dates: start: 20060310, end: 20060411
  30. BACTRIM [Concomitant]
     Indication: ANTIBIOTIC PROPHYLAXIS
     Dosage: 2 TAB(S), 2X/DAY M-W-F
     Route: 048
     Dates: start: 20060217, end: 20060411
  31. BACTRIM [Concomitant]
     Dosage: 1 TAB(S) 400/80 MG, 2X/DAY,M-W-F
     Route: 048
     Dates: start: 20060411, end: 20060426
  32. BACTRIM [Concomitant]
     Dosage: 400/80 MG (2 TABS),2X/DAY, M-W-F
     Route: 048
     Dates: start: 20060426
  33. EPOETIN ALFA [Concomitant]
     Dosage: 40000 UNITS,1X/WEEK
     Route: 058
     Dates: start: 20060116
  34. FILGRASTIM [Concomitant]
     Indication: NEUTROPENIA
     Dosage: 300 A?G, 1X/DAY X 7DAYS
     Route: 058
     Dates: start: 20060320, end: 20060414
  35. FILGRASTIM [Concomitant]
     Dosage: 480 A?G, DAILY
     Route: 058
     Dates: start: 20060414, end: 20060425
  36. FAMCICLOVIR [Concomitant]
     Indication: INFECTION PROPHYLAXIS
     Dosage: 250 MG, 2X/DAY
     Route: 048
     Dates: start: 20060310, end: 20060411
  37. FAMCICLOVIR [Concomitant]
     Dosage: 250 MG, 2X/DAY
     Route: 048
     Dates: start: 20060426
  38. ACETAMINOPHEN [Concomitant]
     Indication: PREMEDICATION
     Dosage: 650 MG, 1 HR PRIOR TO CHEMO
     Route: 048
     Dates: start: 20060313, end: 20060317
  39. DIPHENHYDRAMINE HCL [Concomitant]
     Indication: PREMEDICATION
     Dosage: 50 MG, 1 HR PRIOR TO CHEMO
     Route: 048
     Dates: start: 20060313, end: 20060317
  40. SENNA [Interacting]
     Indication: CONSTIPATION
     Dosage: 8.6 MG, BED T.
     Route: 048
     Dates: start: 20051115, end: 20060302
  41. ACETAMINOPHEN [Concomitant]
     Dosage: 650 MG, 1 DOSE
     Route: 048
     Dates: start: 20060412, end: 20060412
  42. FUROSEMIDE [Concomitant]
     Dosage: 20 MG, 1 DOSE
     Route: 042
     Dates: start: 20060412, end: 20060412
  43. FUROSEMIDE [Concomitant]
     Dosage: 40 MG, 1 DOSE
     Route: 042
     Dates: start: 20060413, end: 20060413
  44. LACTULOSE [Concomitant]
     Indication: CONSTIPATION
     Dosage: 20 GM/30 ML, 1 DOSE
     Route: 048
     Dates: start: 20060424, end: 20060424
  45. VALACYCLOVIR HCL [Concomitant]
     Indication: ANTIBIOTIC PROPHYLAXIS
     Dosage: 500 MG, 2X/DAY
     Route: 048
     Dates: start: 20060411, end: 20060426
  46. AZTREONAM [Concomitant]
     Indication: ESCHERICHIA BACTERAEMIA
     Dosage: 2 G, EVERY 8H
     Route: 042
     Dates: start: 20060413
  47. OXYCODONE HCL [Concomitant]
     Indication: BACK PAIN
     Dosage: 5 MG, EVERY 6H
     Route: 048
     Dates: start: 20060414, end: 20060418
  48. OXYCODONE HCL [Concomitant]
     Dosage: 10 MG, EVERY 6H
     Route: 048
     Dates: start: 20060418, end: 20060426
  49. CASPOFUNGIN [Concomitant]
     Indication: ANTIFUNGAL PROPHYLAXIS
     Dosage: 70 MG, 1 DOSE
     Route: 042
     Dates: start: 20060414, end: 20060414
  50. CASPOFUNGIN [Concomitant]
     Dosage: 50 MG, DAILY
     Route: 042
     Dates: start: 20060414
  51. VANCOMYCIN [Concomitant]
     Indication: PROPHYLAXIS
     Dosage: 1 G, DAILY
     Route: 042
     Dates: start: 20060416, end: 20060421
  52. FLUCONAZOLE [Concomitant]
     Dosage: 400 MG DAILY
     Route: 048
     Dates: start: 20060120, end: 20060411
  53. AVELOX [Concomitant]
     Dosage: 400 MG DAILY
     Route: 048
     Dates: start: 20060410, end: 20060411
  54. AVELOX [Concomitant]
     Dosage: 400 MG DAILY
     Route: 042
     Dates: start: 20060411, end: 20060413
  55. HEPARIN [Concomitant]
     Indication: THROMBOSIS PROPHYLAXIS
     Dosage: 5000 UNITS/CC BID
     Route: 058
     Dates: start: 20060411
  56. IMMUNE GLOBULIN (HUMAN) [Concomitant]
     Dosage: 50 MG, 1 DOSE
     Route: 042
     Dates: start: 20060412, end: 20060412
  57. HYDROCORTISONE [Concomitant]
     Indication: PREMEDICATION
     Dosage: 100 MG, 1 DOSE
     Route: 042
     Dates: start: 20060412, end: 20060412
  58. DIPHENHYDRAMINE HCL [Concomitant]
     Dosage: 25 MG, 1 DOSE
     Route: 048
     Dates: start: 20060412, end: 20060412
  59. LACTULOSE [Concomitant]
     Dosage: 10 GMS/15 ML Q2HRS UNTIL BM
     Route: 048
     Dates: start: 20060413, end: 20060414
  60. ACETAMINOPHEN AND OXYCODONE HCL [Concomitant]
     Indication: BACK PAIN
     Dosage: 1 TAB Q4H PRN
     Route: 048
     Dates: start: 20060403, end: 20060414
  61. FLUCONAZOLE [Concomitant]
     Dosage: 400 MG DAILY
     Route: 048
     Dates: start: 20060411, end: 20060414
  62. GENTAMICIN [Concomitant]
     Dosage: 180 MG DAILY
     Route: 042
     Dates: start: 20060414, end: 20060420
  63. OXYCODONE HCL [Concomitant]
     Dosage: 10 MG Q6H
     Route: 048
     Dates: start: 20060418, end: 20060426
  64. LACTULOSE [Concomitant]
     Dosage: 10G/15ML 2 DOSES
     Route: 048
     Dates: start: 20060404, end: 20060404

REACTIONS (1)
  - HYPERKALAEMIA [None]
